FAERS Safety Report 10017258 (Version 1)
Quarter: 2014Q1

REPORT INFORMATION
  Report Type: Spontaneous
  Country: US (occurrence: None)
  Receive Date: 20140313
  Receipt Date: 20140313
  Transmission Date: 20141002
  Serious: No
  Sender: FDA-Public Use
  Company Number: None

PATIENT
  Age: 75 Year
  Sex: Female
  Weight: 69.4 kg

DRUGS (1)
  1. DETROL LA [Suspect]
     Indication: BLADDER DISORDER
     Dosage: ONE CAPSULE ONCE DAILY TAKEN BY MOUTH..
     Route: 048
     Dates: start: 20130228, end: 20130314

REACTIONS (5)
  - Oropharyngeal pain [None]
  - Chest pain [None]
  - Chest pain [None]
  - Gastrooesophageal reflux disease [None]
  - Eructation [None]
